FAERS Safety Report 20784257 (Version 2)
Quarter: 2022Q2

REPORT INFORMATION
  Report Type: Spontaneous
  Country: US (occurrence: US)
  Receive Date: 20220504
  Receipt Date: 20220513
  Transmission Date: 20220721
  Serious: Yes (Other)
  Sender: FDA-Public Use
  Company Number: US-ELI_LILLY_AND_COMPANY-US202204011797

PATIENT
  Sex: Female

DRUGS (5)
  1. TRULICITY [Suspect]
     Active Substance: DULAGLUTIDE
     Indication: Type 2 diabetes mellitus
     Dosage: 0.75 MG, WEEKLY (1/W)
     Route: 058
     Dates: start: 202108
  2. TRULICITY [Suspect]
     Active Substance: DULAGLUTIDE
     Indication: Type 2 diabetes mellitus
     Dosage: 0.75 MG, WEEKLY (1/W)
     Route: 058
     Dates: start: 202108
  3. TRULICITY [Suspect]
     Active Substance: DULAGLUTIDE
     Dosage: 0.75 MG, WEEKLY (1/W)
     Route: 058
  4. NEURONTIN [Suspect]
     Active Substance: GABAPENTIN
     Indication: Product used for unknown indication
     Dosage: 100 MG, UNKNOWN
     Route: 065
  5. UBRELVY [Concomitant]
     Active Substance: UBROGEPANT
     Indication: Migraine

REACTIONS (25)
  - Seizure [Unknown]
  - Thrombosis [Unknown]
  - Fall [Unknown]
  - Contusion [Unknown]
  - Blood glucose increased [Unknown]
  - Gait disturbance [Unknown]
  - Migraine [Unknown]
  - Lymphoedema [Unknown]
  - Cerebral disorder [Unknown]
  - Balance disorder [Unknown]
  - Hyperaesthesia [Unknown]
  - Arthropathy [Unknown]
  - Weight increased [Unknown]
  - Soft tissue injury [Unknown]
  - Apnoea [Unknown]
  - Glycosylated haemoglobin increased [Unknown]
  - Pain [Unknown]
  - Disorientation [Unknown]
  - Visual impairment [Unknown]
  - Reaction to preservatives [Unknown]
  - Reaction to colouring [Unknown]
  - Vomiting [Unknown]
  - Injection site pain [Unknown]
  - Injection site haemorrhage [Unknown]
  - Incorrect dose administered [Unknown]
